FAERS Safety Report 7952236-0 (Version None)
Quarter: 2011Q4

REPORT INFORMATION
  Report Type: 
  Country: None (occurrence: None)
  Receive Date: 20111201
  Receipt Date: 20080827
  Transmission Date: 20120403
  Serious: Yes (Congenital Anomaly)
  Sender: FDA-Public Use
  Company Number: US-AMGEN-US197690

PATIENT
  Sex: Female

DRUGS (16)
  1. AMPICILLIN [Concomitant]
     Dosage: UNK UNK, UNK
     Route: 064
     Dates: start: 20051024, end: 20051031
  2. CALCIUM WITH VITAMIN D [Concomitant]
     Dosage: UNK UNK, UNK
     Route: 064
     Dates: start: 20051228, end: 20060418
  3. FISH OIL [Concomitant]
     Dosage: UNK UNK, UNK
     Route: 064
     Dates: start: 20060201, end: 20060418
  4. ASCORBIC ACID [Concomitant]
     Dosage: UNK UNK, UNK
     Route: 064
     Dates: start: 20050830, end: 20060418
  5. INFLUENZA VACCINE [Concomitant]
     Dosage: UNK UNK, UNK
     Route: 064
     Dates: end: 20051107
  6. PENICILLIN [Concomitant]
     Dosage: UNK UNK, UNK
     Route: 064
     Dates: start: 20060125, end: 20060130
  7. MULTI-VITAMINS [Concomitant]
     Dosage: UNK UNK, UNK
     Route: 064
  8. NAPROXEN [Concomitant]
     Dosage: UNK UNK, UNK
     Route: 064
     Dates: start: 20050830, end: 20060418
  9. ACETYLSALICYLIC ACID SRT [Concomitant]
     Dosage: UNK UNK, UNK
     Route: 064
     Dates: start: 20050830, end: 20060418
  10. IRON [Concomitant]
     Dosage: UNK UNK, UNK
     Route: 064
     Dates: start: 20050830, end: 20060418
  11. ETANERCEPT [Suspect]
     Indication: RHEUMATOID ARTHRITIS
     Dosage: UNK UNK, UNK
     Route: 064
     Dates: start: 20050815, end: 20060418
  12. PREDNISONE TAB [Concomitant]
     Dosage: UNK UNK, UNK
     Route: 064
     Dates: start: 20050830, end: 20060418
  13. RANITIDINE [Concomitant]
     Dosage: UNK UNK, UNK
     Route: 064
     Dates: start: 20050815, end: 20060418
  14. ACETAMINOPHEN [Concomitant]
     Dosage: UNK UNK, UNK
     Route: 064
     Dates: start: 20060329, end: 20060331
  15. CALCIUM CARBONATE [Concomitant]
     Dosage: UNK UNK, UNK
     Route: 064
     Dates: start: 20060329, end: 20060330
  16. LOPERAMIDE HCL [Concomitant]
     Dosage: UNK UNK, UNK
     Route: 064
     Dates: start: 20051118, end: 20051119

REACTIONS (1)
  - CONGENITAL GASTRIC ANOMALY [None]
